FAERS Safety Report 10373788 (Version 1)
Quarter: 2014Q1

REPORT INFORMATION
  Report Type: Spontaneous
  Country: US (occurrence: None)
  Receive Date: 20140306
  Receipt Date: 20140306
  Transmission Date: 20141002
  Serious: Yes (Hospitalization)
  Sender: FDA-Public Use
  Company Number: 163-21880-13074471

PATIENT
  Age: 70 Year
  Sex: Male

DRUGS (11)
  1. REVLIMID (LENALIDOMIDE) (5 MILLIGRAM, CAPSULES) [Suspect]
     Indication: PLASMA CELL MYELOMA
     Dosage: 5 MG, 21 IN 21 D, PO
     Route: 048
     Dates: start: 20130709
  2. LEVAQUIN (LEVOGLOXACIN) (TABLETS) [Concomitant]
  3. CALCIUM ACETATE [Concomitant]
  4. DEXAMETHASONE [Concomitant]
  5. GABAPENTIN [Concomitant]
  6. METOPROLOL TARTRATE [Concomitant]
  7. PROCRIT (ERYTHROPOIETIN) [Concomitant]
  8. ASPIRIN (ACETYLSALICYLIC ACID) (TABLETS) [Concomitant]
  9. LEVOTHYROXIN (LEVOTHYROXINE SODIUM) [Concomitant]
  10. FUROSEMIDE [Concomitant]
  11. METOLAZONE [Concomitant]

REACTIONS (2)
  - Pneumonia [None]
  - Pyrexia [None]
